FAERS Safety Report 7268631-1 (Version None)
Quarter: 2011Q1

REPORT INFORMATION
  Report Type: 
  Country: None (occurrence: None)
  Receive Date: 20110201
  Receipt Date: 20101227
  Transmission Date: 20110831
  Serious: Yes (Hospitalization, Other)
  Sender: FDA-Public Use
  Company Number: US-BAYER-200937456NA

PATIENT
  Sex: Female
  Weight: 91 kg

DRUGS (6)
  1. YASMIN [Suspect]
     Indication: PRODUCT USED FOR UNKNOWN INDICATION
     Route: 048
     Dates: start: 20010124, end: 20070301
  2. ZYRTEC [Concomitant]
     Dates: start: 20010101, end: 20080101
  3. METOCLOPRAMIDE [Concomitant]
     Dates: start: 20040101, end: 20090101
  4. ANTIBIOTICS [Concomitant]
  5. NEXIUM [Concomitant]
     Dates: start: 20040101, end: 20080101
  6. NSAID'S [Concomitant]

REACTIONS (6)
  - NAUSEA [None]
  - GALLBLADDER CHOLESTEROLOSIS [None]
  - CHOLECYSTITIS CHRONIC [None]
  - ABDOMINAL PAIN [None]
  - CHOLELITHIASIS [None]
  - REFLUX GASTRITIS [None]
